FAERS Safety Report 5566345-7 (Version None)
Quarter: 2007Q4

REPORT INFORMATION
  Report Type: 
  Country: None (occurrence: None)
  Receive Date: 20071219
  Receipt Date: 20071213
  Transmission Date: 20080405
  Serious: Yes (Hospitalization)
  Sender: FDA-Public Use
  Company Number: US-JNJFOC-20061003793

PATIENT
  Age: 75 Year
  Sex: Male

DRUGS (6)
  1. ACETAMINOPHEN [Suspect]
     Route: 048
  2. ACETAMINOPHEN [Suspect]
     Indication: POSTOPERATIVE CARE
     Route: 048
  3. ACETAMINOPHEN [Suspect]
     Indication: POSTOPERATIVE CARE
     Dosage: X 1 DAY
     Route: 042
  4. ALCOHOL [Suspect]
     Indication: DRUG USE FOR UNKNOWN INDICATION
  5. HYDORCHLOROTHIAZIDE [Concomitant]
     Indication: HYPERTENSION
  6. RAMIPRIL [Concomitant]
     Indication: HYPERTENSION

REACTIONS (2)
  - ALCOHOL USE [None]
  - HEPATIC FAILURE [None]
